FAERS Safety Report 6978500-X (Version None)
Quarter: 2010Q3

REPORT INFORMATION
  Report Type: 
  Country: None (occurrence: None)
  Receive Date: 20100913
  Receipt Date: 20090327
  Transmission Date: 20110219
  Serious: Yes (Congenital Anomaly)
  Sender: FDA-Public Use
  Company Number: PT-BAYER-201037321GPV

PATIENT
  Age: 0 Hour

DRUGS (1)
  1. BETAFERON [Suspect]
     Indication: FAMILIAL RISK FACTOR

REACTIONS (1)
  - TALIPES [None]
